FAERS Safety Report 18705769 (Version 1)
Quarter: 2021Q1

REPORT INFORMATION
  Report Type: Spontaneous
  Country: US (occurrence: US)
  Receive Date: 20210106
  Receipt Date: 20210106
  Transmission Date: 20210419
  Serious: No
  Sender: FDA-Public Use
  Company Number: US-JNJFOC-20201231623

PATIENT
  Age: 75 Year
  Sex: Male
  Weight: 127.12 kg

DRUGS (1)
  1. MENS ROGAINE EXTRA STRENGTH [Suspect]
     Active Substance: MINOXIDIL
     Indication: ALOPECIA
     Dosage: APPLY BASED ON THE INSTRUCTION, TWICE A DAY THE PRODUCT WAS LAST USED ON?14?DEC?2020.
     Route: 061
     Dates: start: 202011

REACTIONS (1)
  - Weight increased [Not Recovered/Not Resolved]

NARRATIVE: CASE EVENT DATE: 2020
